FAERS Safety Report 9366300 (Version 1)
Quarter: 2013Q2

REPORT INFORMATION
  Report Type: Spontaneous
  Country: PL (occurrence: PL)
  Receive Date: 20130625
  Receipt Date: 20130625
  Transmission Date: 20140414
  Serious: Yes (Death, Other)
  Sender: FDA-Public Use
  Company Number: PL-JNJFOC-20130610163

PATIENT
  Sex: 0

DRUGS (3)
  1. ABCIXIMAB [Suspect]
     Indication: MYOCARDIAL INFARCTION
     Dosage: BEFORE/DURING TRANSFER 30 MIN BEFORE 1ST BALLOON INFLATION/ CLOSER 30 MIN TO/DURING PCI-LATE GROUP.
     Route: 042
  2. CLOPIDOGREL [Concomitant]
     Indication: PRODUCT USED FOR UNKNOWN INDICATION
     Dosage: MORE THAN OR EQUAL TO 300 MG
     Route: 065
  3. HEPARIN [Concomitant]
     Indication: PRODUCT USED FOR UNKNOWN INDICATION
     Route: 065

REACTIONS (5)
  - Death [Fatal]
  - Myocardial infarction [Fatal]
  - Myocardial infarction [Unknown]
  - Haemorrhage [Unknown]
  - Vessel puncture site haematoma [Unknown]
